FAERS Safety Report 4661509-9 (Version None)
Quarter: 2005Q2

REPORT INFORMATION
  Report Type: 
  Country: None (occurrence: None)
  Receive Date: 20050502
  Receipt Date: 20041220
  Transmission Date: 20051028
  Serious: No
  Sender: FDA-Public Use
  Company Number: 200419798US

PATIENT
  Age: 21 Year
  Sex: Female

DRUGS (1)
  1. KETEK [Suspect]

REACTIONS (4)
  - DIZZINESS [None]
  - HYPERSENSITIVITY [None]
  - NAUSEA [None]
  - VISUAL DISTURBANCE [None]
